FAERS Safety Report 4363810-5 (Version None)
Quarter: 2004Q2

REPORT INFORMATION
  Report Type: 
  Country: None (occurrence: None)
  Receive Date: 20040521
  Receipt Date: 20040503
  Transmission Date: 20050107
  Serious: Yes (Hospitalization)
  Sender: FDA-Public Use
  Company Number: ZANA001296

PATIENT
  Age: 74 Year
  Sex: Female

DRUGS (4)
  1. TIZANIDINE HCL [Suspect]
     Indication: BACK PAIN
     Dosage: 6 MG DAILY ORAL
     Route: 048
     Dates: start: 20031104, end: 20040120
  2. PANACOD (CODEINE PHOSPHATE) [Concomitant]
  3. PREDNISONE [Concomitant]
  4. MIACALCIN [Concomitant]

REACTIONS (3)
  - HEPATIC FIBROSIS [None]
  - HEPATOCELLULAR DAMAGE [None]
  - LIVER FUNCTION TEST ABNORMAL [None]
